FAERS Safety Report 4998735-5 (Version None)
Quarter: 2006Q2

REPORT INFORMATION
  Report Type: 
  Country: None (occurrence: None)
  Receive Date: 20060508
  Receipt Date: 20060330
  Transmission Date: 20061013
  Serious: Yes (Hospitalization)
  Sender: FDA-Public Use
  Company Number: 6021645

PATIENT
  Age: 96 Year
  Sex: Female

DRUGS (5)
  1. LEVOTHYROX [Suspect]
     Dosage: 1.5 DOSAGE
     Route: 048
  2. COUMADIN [Suspect]
     Dosage: 0.5 DOSAGE
     Route: 048
     Dates: start: 20060130, end: 20060228
  3. ALDACTONE [Suspect]
     Dosage: 25 MG (25 MG, CYCLICAL), ORAL
     Route: 048
     Dates: end: 20060228
  4. FERROUS SULFATE TAB [Suspect]
     Dosage: 1 IN 1D           ORAL
     Route: 048
     Dates: end: 20060228
  5. LASIX [Suspect]
     Dosage: 1 D, ORAL
     Route: 048

REACTIONS (3)
  - ANAEMIA [None]
  - DRUG INTERACTION [None]
  - GASTROINTESTINAL HAEMORRHAGE [None]
